FAERS Safety Report 6096891-1 (Version None)
Quarter: 2009Q1

REPORT INFORMATION
  Report Type: 
  Country: None (occurrence: None)
  Receive Date: 20090227
  Receipt Date: 20090217
  Transmission Date: 20090719
  Serious: Yes (Other)
  Sender: FDA-Public Use
  Company Number: JP-AVENTIS-200910277JP

PATIENT
  Age: 47 Year
  Sex: Female
  Weight: 58 kg

DRUGS (2)
  1. ALLEGRA [Suspect]
     Route: 048
     Dates: start: 20090117, end: 20090122
  2. AMLODIN [Concomitant]
     Indication: HYPERTENSION
     Route: 048
     Dates: start: 20070818

REACTIONS (5)
  - ARTHRALGIA [None]
  - CHOKING [None]
  - GENERALISED OEDEMA [None]
  - HYPERSENSITIVITY [None]
  - MYALGIA [None]
